FAERS Safety Report 8606092-8 (Version None)
Quarter: 2012Q3

REPORT INFORMATION
  Report Type: 
  Country: None (occurrence: None)
  Receive Date: 20120820
  Receipt Date: 20120810
  Transmission Date: 20120928
  Serious: Yes (Hospitalization)
  Sender: FDA-Public Use
  Company Number: DE-TEVA-353374GER

PATIENT
  Sex: Female
  Weight: 61 kg

DRUGS (11)
  1. BEVACIZUMAB [Suspect]
     Indication: BREAST CANCER
     Route: 042
     Dates: start: 20120430
  2. VIDISIC [Concomitant]
     Dates: start: 20120625
  3. DOXORUBICIN HCL [Suspect]
     Indication: BREAST CANCER
     Route: 042
     Dates: start: 20120430
  4. PANTOPRAZOLE [Concomitant]
     Dosage: 40 MILLIGRAM DAILY;
     Dates: start: 20120730
  5. IMODIUM [Concomitant]
     Dosage: 2 MILLIGRAM DAILY;
     Dates: start: 20120510
  6. LIDOCAINE HYDROCHLORIDE [Concomitant]
     Dates: start: 20120529
  7. PACLITAXEL [Suspect]
     Indication: BREAST CANCER
     Route: 042
     Dates: start: 20120430
  8. ONDANSETRON [Concomitant]
     Dosage: 4 MILLIGRAM DAILY;
     Dates: start: 20120611
  9. OMEPRAZOLE [Concomitant]
     Dosage: 20 MILLIGRAM DAILY;
     Dates: start: 20120507
  10. CARBOPLATIN [Suspect]
     Indication: BREAST CANCER
     Route: 042
     Dates: start: 20120430
  11. SPASMOLYT [Concomitant]
     Dosage: 30 MILLIGRAM DAILY;
     Dates: start: 20120611

REACTIONS (1)
  - GASTROINTESTINAL HAEMORRHAGE [None]
